FAERS Safety Report 4654465-0 (Version None)
Quarter: 2005Q2

REPORT INFORMATION
  Report Type: 
  Country: None (occurrence: None)
  Receive Date: 20050404
  Receipt Date: 20050104
  Transmission Date: 20051028
  Serious: No
  Sender: FDA-Public Use
  Company Number: USA050187728

PATIENT
  Age: 69 Year
  Sex: Female

DRUGS (7)
  1. CYMBALTA [Suspect]
     Dosage: 60 MG DAY
     Dates: start: 20041201, end: 20041201
  2. XANAX (ALPRAZOLAM DUM) [Concomitant]
  3. AMBIEN [Concomitant]
  4. NEXIUM [Concomitant]
  5. TOPAMAX [Concomitant]
  6. ZOCOR (SIMVASTATIN RATIOPHARM) [Concomitant]
  7. BEXTRA [Concomitant]

REACTIONS (2)
  - AMNESIA [None]
  - SLEEP WALKING [None]
